FAERS Safety Report 13706845 (Version 2)
Quarter: 2017Q4

REPORT INFORMATION
  Report Type: Spontaneous
  Country: US (occurrence: US)
  Receive Date: 20170630
  Receipt Date: 20171123
  Transmission Date: 20180320
  Serious: No
  Sender: FDA-Public Use
  Company Number: US-JNJFOC-20170616781

PATIENT
  Sex: Male

DRUGS (4)
  1. RISPERIDONE. [Suspect]
     Active Substance: RISPERIDONE
     Indication: BIPOLAR DISORDER
     Dosage: EVERY BEDTIME
     Route: 048
     Dates: start: 20110511, end: 20110512
  2. RISPERIDONE. [Suspect]
     Active Substance: RISPERIDONE
     Indication: BIPOLAR DISORDER
     Dosage: EVERY BEDTIME
     Route: 048
     Dates: start: 20110430, end: 20110509
  3. RISPERDAL [Suspect]
     Active Substance: RISPERIDONE
     Indication: PRODUCT USED FOR UNKNOWN INDICATION
     Dosage: VARING DOSE FROM 0.5 MG , 1 MG, 1.5 MG
     Route: 048
     Dates: start: 20110504, end: 20110511
  4. RISPERIDONE. [Suspect]
     Active Substance: RISPERIDONE
     Indication: BIPOLAR DISORDER
     Dosage: EVERY BEDTIME
     Route: 048
     Dates: start: 20110510

REACTIONS (2)
  - Gynaecomastia [Unknown]
  - Emotional disorder [Unknown]
